FAERS Safety Report 24727514 (Version 2)
Quarter: 2024Q4

REPORT INFORMATION
  Report Type: Spontaneous
  Country: BR (occurrence: BR)
  Receive Date: 20241212
  Receipt Date: 20241217
  Transmission Date: 20250115
  Serious: Yes (Other)
  Sender: SANDOZ
  Company Number: BR-SANDOZ-SDZ2024BR101326

PATIENT
  Sex: Female

DRUGS (1)
  1. ACLASTA [Suspect]
     Active Substance: ZOLEDRONIC ACID
     Indication: Osteopenia
     Dosage: UNK
     Route: 065
     Dates: start: 20241004

REACTIONS (13)
  - Pericardial effusion [Unknown]
  - Arthritis [Unknown]
  - Fall [Unknown]
  - Greater trochanteric pain syndrome [Unknown]
  - Food intolerance [Unknown]
  - Weight decreased [Unknown]
  - Abdominal pain [Unknown]
  - Diarrhoea [Unknown]
  - Fatigue [Unknown]
  - Pyrexia [Unknown]
  - Chills [Unknown]
  - Pain in jaw [Unknown]
  - Chest pain [Unknown]

NARRATIVE: CASE EVENT DATE: 20241004
